FAERS Safety Report 17936839 (Version 1)
Quarter: 2020Q2

REPORT INFORMATION
  Report Type: Spontaneous
  Country: US (occurrence: US)
  Receive Date: 20200624
  Receipt Date: 20200624
  Transmission Date: 20200714
  Serious: No
  Sender: FDA-Public Use
  Company Number: US-PFIZER INC-2020145718

PATIENT
  Age: 53 Year
  Sex: Female
  Weight: 79 kg

DRUGS (3)
  1. PREMARIN [Suspect]
     Active Substance: ESTROGENS, CONJUGATED
     Indication: MENOPAUSE
  2. PREMARIN [Suspect]
     Active Substance: ESTROGENS, CONJUGATED
     Indication: ATROPHIC VULVOVAGINITIS
     Dosage: 1 G, 3 TIMES A WEEK
     Route: 067
     Dates: start: 2019
  3. PREMARIN [Suspect]
     Active Substance: ESTROGENS, CONJUGATED
     Indication: HOT FLUSH

REACTIONS (3)
  - Intentional product misuse [Unknown]
  - Irritability [Unknown]
  - Off label use [Unknown]

NARRATIVE: CASE EVENT DATE: 2019
